FAERS Safety Report 7554859-X (Version None)
Quarter: 2011Q2

REPORT INFORMATION
  Report Type: 
  Country: None (occurrence: None)
  Receive Date: 20110617
  Receipt Date: 20110606
  Transmission Date: 20111010
  Serious: Yes (Death)
  Sender: FDA-Public Use
  Company Number: EC-GENENTECH-320117

PATIENT
  Sex: Male
  Weight: 56 kg

DRUGS (5)
  1. RITUXAN [Suspect]
     Indication: NON-HODGKIN'S LYMPHOMA
     Dosage: UNK
     Route: 042
     Dates: start: 20101101, end: 20101101
  2. LEUCOVORIN CALCIUM [Concomitant]
     Indication: NON-HODGKIN'S LYMPHOMA
     Dosage: 10 MG/ML, UNK
     Route: 042
     Dates: start: 20101101, end: 20101101
  3. METHOTREXATE [Concomitant]
     Indication: NON-HODGKIN'S LYMPHOMA
     Dosage: 1280 MG, UNK
     Route: 042
     Dates: start: 20101101, end: 20101101
  4. DEXAMETHASONE [Concomitant]
     Indication: NON-HODGKIN'S LYMPHOMA
     Dosage: UNK
     Route: 042
     Dates: start: 20101101, end: 20101101
  5. CARMUSTINE [Concomitant]
     Indication: NON-HODGKIN'S LYMPHOMA
     Dosage: 100 MG/M2, QAM
     Route: 042
     Dates: start: 20101014, end: 20101114

REACTIONS (1)
  - CARDIO-RESPIRATORY ARREST [None]
